FAERS Safety Report 23462567 (Version 1)
Quarter: 2024Q1

REPORT INFORMATION
  Report Type: Spontaneous
  Country: CA (occurrence: CA)
  Receive Date: 20240131
  Receipt Date: 20240131
  Transmission Date: 20240410
  Serious: Yes (Life-Threatening)
  Sender: FDA-Public Use
  Company Number: CA-FreseniusKabi-FK202401401

PATIENT
  Age: 60 Year
  Sex: Female

DRUGS (3)
  1. ZOLEDRONIC ACID [Suspect]
     Active Substance: ZOLEDRONIC ACID
     Indication: Product used for unknown indication
     Route: 042
  2. EPIRUBICIN HYDROCHLORIDE [Suspect]
     Active Substance: EPIRUBICIN HYDROCHLORIDE
     Indication: Product used for unknown indication
     Dosage: FORM OF ADMIN: SOLUTION INTRAVENOUS?ROUTE OF ADMIN: INTRAVENOUS
  3. BEVACIZUMAB [Suspect]
     Active Substance: BEVACIZUMAB
     Indication: Product used for unknown indication
     Dosage: NOT SPECIFIED

REACTIONS (8)
  - Acute kidney injury [Unknown]
  - Cardio-respiratory arrest [Unknown]
  - Clostridium difficile infection [Unknown]
  - Deep vein thrombosis [Unknown]
  - Drug ineffective [Unknown]
  - Nausea [Unknown]
  - Pulmonary embolism [Unknown]
  - Vomiting [Unknown]
